FAERS Safety Report 19700285 (Version 2)
Quarter: 2021Q3

REPORT INFORMATION
  Report Type: Report from Study
  Country: None (occurrence: US)
  Receive Date: 20210814
  Receipt Date: 20210818
  Transmission Date: 20211014
  Serious: Yes (Hospitalization, Other)
  Sender: FDA-Public Use
  Company Number: US-ABBVIE-21K-163-4018133-00

PATIENT
  Sex: Female

DRUGS (2)
  1. RINVOQ [Suspect]
     Active Substance: UPADACITINIB
     Route: 048
     Dates: start: 202107
  2. RINVOQ [Suspect]
     Active Substance: UPADACITINIB
     Indication: RHEUMATOID ARTHRITIS
     Route: 048
     Dates: start: 2020, end: 2021

REACTIONS (10)
  - Pain [Not Recovered/Not Resolved]
  - Haematuria [Unknown]
  - Balance disorder [Unknown]
  - Hospitalisation [Recovered/Resolved]
  - Joint swelling [Unknown]
  - Arthritis [Unknown]
  - Intestinal dilatation [Unknown]
  - Gastrointestinal disorder [Unknown]
  - Swelling [Not Recovered/Not Resolved]
  - Peripheral swelling [Unknown]

NARRATIVE: CASE EVENT DATE: 2021
